FAERS Safety Report 13456694 (Version 3)
Quarter: 2017Q2

REPORT INFORMATION
  Report Type: Spontaneous
  Country: DE (occurrence: DE)
  Receive Date: 20170419
  Receipt Date: 20170630
  Transmission Date: 20170830
  Serious: Yes (Hospitalization, Other)
  Sender: FDA-Public Use
  Company Number: DE-B.I. PHARMACEUTICALS,INC./RIDGEFIELD-2017-BI-022083

PATIENT
  Age: 65 Year
  Sex: Male
  Weight: 105 kg

DRUGS (16)
  1. RAMIPRIL. [Concomitant]
     Active Substance: RAMIPRIL
     Indication: CORONARY ARTERY DISEASE
  2. FUROSEMID [Concomitant]
     Active Substance: FUROSEMIDE
     Indication: CARDIAC FAILURE
     Dosage: ADMINISTRATION FOR YEARS
     Route: 048
  3. LEVEMIR [Concomitant]
     Active Substance: INSULIN DETEMIR
     Indication: TYPE 2 DIABETES MELLITUS
     Dosage: ADMINISTRATION FOR YEARS
     Route: 058
  4. CORVATON [Concomitant]
     Active Substance: MOLSIDOMINE
     Indication: PRODUCT USED FOR UNKNOWN INDICATION
     Route: 065
  5. METOPROLOL SUCCINATE. [Concomitant]
     Active Substance: METOPROLOL SUCCINATE
     Indication: CORONARY ARTERY DISEASE
  6. MORPHIN SULFAT [Concomitant]
     Indication: PAIN
     Dosage: ADMINISTRATION FOR YEARS
     Route: 048
  7. METOPROLOL SUCCINATE. [Concomitant]
     Active Substance: METOPROLOL SUCCINATE
     Indication: CARDIAC FAILURE
     Dosage: ADMINISTRATION FOR YEARS; UNIT DOSE: 95MG AND 47.5MG
     Route: 048
  8. FUROSEMID [Concomitant]
     Active Substance: FUROSEMIDE
     Indication: CORONARY ARTERY DISEASE
  9. PANTOPRAZOL [Concomitant]
     Active Substance: PANTOPRAZOLE SODIUM
     Indication: PRODUCT USED FOR UNKNOWN INDICATION
     Route: 065
  10. ISOKET [Concomitant]
     Active Substance: ISOSORBIDE DINITRATE
     Indication: PRODUCT USED FOR UNKNOWN INDICATION
     Route: 065
  11. JARDIANCE [Suspect]
     Active Substance: EMPAGLIFLOZIN
     Indication: TYPE 2 DIABETES MELLITUS
     Route: 048
     Dates: start: 20161220, end: 20170116
  12. NOVORAPID [Concomitant]
     Active Substance: INSULIN ASPART
     Indication: TYPE 2 DIABETES MELLITUS
     Dosage: ADMINISTRATION FOR YEARS AS NECESSARY
     Route: 058
  13. SIMVASTATIN. [Concomitant]
     Active Substance: SIMVASTATIN
     Indication: PRODUCT USED FOR UNKNOWN INDICATION
     Route: 065
  14. FORXIGA [Suspect]
     Active Substance: DAPAGLIFLOZIN
     Indication: TYPE 2 DIABETES MELLITUS
     Route: 048
     Dates: start: 20161124, end: 20161218
  15. RAMIPRIL. [Concomitant]
     Active Substance: RAMIPRIL
     Indication: CARDIAC FAILURE
     Dosage: ADMINISTRATION FOR YEARS
     Route: 048
  16. ASPIRIN. [Concomitant]
     Active Substance: ASPIRIN
     Indication: PERIPHERAL ARTERIAL OCCLUSIVE DISEASE
     Dosage: ADMINISTRATION FOR YEARS
     Route: 048

REACTIONS (13)
  - Back pain [Unknown]
  - Petechiae [Unknown]
  - Peripheral artery angioplasty [Unknown]
  - Sepsis [Unknown]
  - Extremity necrosis [Recovering/Resolving]
  - Rash [Unknown]
  - Inflammatory marker increased [Unknown]
  - Vasculitis [Recovering/Resolving]
  - Erythema [Unknown]
  - Blood glucose fluctuation [Unknown]
  - Clostridium difficile infection [Unknown]
  - Purpura [Unknown]
  - Peripheral swelling [Unknown]

NARRATIVE: CASE EVENT DATE: 20161201
